FAERS Safety Report 6110673-3 (Version None)
Quarter: 2009Q1

REPORT INFORMATION
  Report Type: 
  Country: None (occurrence: None)
  Receive Date: 20090304
  Receipt Date: 20090219
  Transmission Date: 20090719
  Serious: Yes (Other)
  Sender: FDA-Public Use
  Company Number: THYM-1000918

PATIENT
  Sex: Female

DRUGS (1)
  1. THYMOGLOBULIN [Suspect]
     Indication: BONE MARROW TRANSPLANT
     Dates: start: 20090201, end: 20090201

REACTIONS (1)
  - BRADYCARDIA [None]
